FAERS Safety Report 8954562 (Version 1)
Quarter: 2012Q4

REPORT INFORMATION
  Report Type: 
  Country: GB (occurrence: GB)
  Receive Date: 20121210
  Receipt Date: 20121210
  Transmission Date: 20130627
  Serious: Yes (Hospitalization)
  Sender: FDA-Public Use
  Company Number: PHFR2012GB006290

PATIENT
  Age: 53 Year
  Sex: Male

DRUGS (2)
  1. CLOZARIL [Suspect]
     Indication: SCHIZOPHRENIA
     Dosage: UNK UKN, UNK
     Route: 048
     Dates: start: 20060505, end: 20121130
  2. CLOZARIL [Suspect]
     Dosage: UNK UKN, Full dose
     Route: 048
     Dates: start: 20121203

REACTIONS (2)
  - Urinary tract infection [Unknown]
  - Neutrophil count increased [Recovered/Resolved]
